FAERS Safety Report 9148038 (Version 1)
Quarter: 2013Q1

REPORT INFORMATION
  Report Type: Spontaneous
  Country: US (occurrence: US)
  Receive Date: 20130308
  Receipt Date: 20130308
  Transmission Date: 20140127
  Serious: Yes (Hospitalization, Other)
  Sender: FDA-Public Use
  Company Number: US-009507513-1303USA002164

PATIENT
  Sex: Female

DRUGS (1)
  1. PEGINTRON [Suspect]
     Indication: HEPATITIS C
     Dosage: UNKNOWN
     Dates: start: 20120101, end: 20121101

REACTIONS (3)
  - Anaemia [Unknown]
  - Drug ineffective [Unknown]
  - Therapeutic response decreased [Unknown]
